FAERS Safety Report 11985206 (Version 2)
Quarter: 2016Q1

REPORT INFORMATION
  Report Type: Spontaneous
  Country: US (occurrence: US)
  Receive Date: 20160201
  Receipt Date: 20160315
  Transmission Date: 20160526
  Serious: Yes (Hospitalization, Other)
  Sender: FDA-Public Use
  Company Number: US-GILEAD-2016-0195038

PATIENT
  Age: 55 Year
  Sex: Male
  Weight: 97.51 kg

DRUGS (15)
  1. HYDROMORPHONE [Concomitant]
     Active Substance: HYDROMORPHONE
  2. LISINOPRIL. [Concomitant]
     Active Substance: LISINOPRIL
  3. MAGNESIUM OXIDE. [Concomitant]
     Active Substance: MAGNESIUM OXIDE
  4. POTASSIUM CHLORIDE. [Concomitant]
     Active Substance: POTASSIUM CHLORIDE
  5. SENNA                              /00142201/ [Concomitant]
     Active Substance: SENNA LEAF
  6. GABAPENTIN. [Concomitant]
     Active Substance: GABAPENTIN
  7. AMLODIPINE [Concomitant]
     Active Substance: AMLODIPINE BESYLATE
  8. HARVONI [Suspect]
     Active Substance: LEDIPASVIR\SOFOSBUVIR
     Indication: HEPATITIS C
     Dosage: UNK
     Route: 048
     Dates: start: 20150717, end: 20151009
  9. LORAZEPAM. [Concomitant]
     Active Substance: LORAZEPAM
  10. HYDRALAZINE [Concomitant]
     Active Substance: HYDRALAZINE HYDROCHLORIDE
  11. PREVACID [Concomitant]
     Active Substance: LANSOPRAZOLE
  12. VITAMIN D                          /00107901/ [Concomitant]
     Active Substance: ERGOCALCIFEROL
  13. WARFARIN [Concomitant]
     Active Substance: WARFARIN
  14. DIGOXIN. [Concomitant]
     Active Substance: DIGOXIN
  15. METOPROLOL SUCCINATE. [Concomitant]
     Active Substance: METOPROLOL SUCCINATE

REACTIONS (2)
  - Myocarditis [Recovered/Resolved]
  - Myocarditis [Recovered/Resolved]

NARRATIVE: CASE EVENT DATE: 20150805
